FAERS Safety Report 13373828 (Version 1)
Quarter: 2017Q1

REPORT INFORMATION
  Report Type: Spontaneous
  Country: US (occurrence: US)
  Receive Date: 20170327
  Receipt Date: 20170327
  Transmission Date: 20170429
  Serious: Yes (Other)
  Sender: FDA-Public Use
  Company Number: None

PATIENT
  Age: 41 Year
  Sex: Female
  Weight: 72.45 kg

DRUGS (1)
  1. SEROQUEL [Suspect]
     Active Substance: QUETIAPINE FUMARATE
     Indication: BIPOLAR DISORDER
     Route: 048
     Dates: start: 20170210, end: 20170321

REACTIONS (9)
  - Myoclonus [None]
  - Bruxism [None]
  - Pain in jaw [None]
  - Torticollis [None]
  - Polydipsia [None]
  - Myalgia [None]
  - Somnolence [None]
  - Dystonia [None]
  - Polyuria [None]

NARRATIVE: CASE EVENT DATE: 20170324
